FAERS Safety Report 12575499 (Version 5)
Quarter: 2018Q2

REPORT INFORMATION
  Report Type: Report from Study
  Country: US (occurrence: US)
  Receive Date: 20160720
  Receipt Date: 20180423
  Transmission Date: 20180711
  Serious: Yes (Other)
  Sender: FDA-Public Use
  Company Number: US-ASTELLAS-2016US018734

PATIENT
  Sex: Female

DRUGS (3)
  1. SOLIFENACIN [Suspect]
     Active Substance: SOLIFENACIN
     Dosage: 10 MG (2 X5 MG), ONCE DAILY
     Route: 048
     Dates: start: 201802
  2. SOLIFENACIN [Suspect]
     Active Substance: SOLIFENACIN
     Indication: URGE INCONTINENCE
     Route: 048
  3. SOLIFENACIN [Suspect]
     Active Substance: SOLIFENACIN
     Indication: MICTURITION URGENCY
     Dosage: HALF OF 5 MG TABLET, ONCE DAILY, ONCE DAILY
     Route: 048

REACTIONS (10)
  - Fall [Unknown]
  - Pollakiuria [Unknown]
  - Fall [Recovering/Resolving]
  - Wrong technique in product usage process [Unknown]
  - Wrong technique in product usage process [Unknown]
  - Intentional product misuse [Unknown]
  - Contusion [Unknown]
  - Pulmonary embolism [Unknown]
  - Underdose [Unknown]
  - Drug ineffective [Unknown]

NARRATIVE: CASE EVENT DATE: 2016
